FAERS Safety Report 20540951 (Version 1)
Quarter: 2022Q1

REPORT INFORMATION
  Report Type: Spontaneous
  Country: US (occurrence: None)
  Receive Date: 20220302
  Receipt Date: 20220302
  Transmission Date: 20220423
  Serious: Yes (Death)
  Sender: FDA-Public Use
  Company Number: None

PATIENT
  Age: 92 Year
  Sex: Female

DRUGS (1)
  1. RETACRIT [Suspect]
     Active Substance: EPOETIN ALFA-EPBX
     Indication: Anaemia
     Dosage: OTHER QUANTITY : 6000 UNITS;?OTHER FREQUENCY : N/A;?
     Route: 058
     Dates: start: 202012, end: 202112

REACTIONS (1)
  - Death [None]

NARRATIVE: CASE EVENT DATE: 20211202
